FAERS Safety Report 9846394 (Version 2)
Quarter: 2014Q1

REPORT INFORMATION
  Report Type: Report from Study
  Country: UG (occurrence: UG)
  Receive Date: 20140127
  Receipt Date: 20140127
  Transmission Date: 20141002
  Serious: Yes (Life-Threatening)
  Sender: FDA-Public Use
  Company Number: UG-ABBVIE-11P-167-0696978-00

PATIENT
  Age: 34 Year
  Sex: Female

DRUGS (3)
  1. ALUVIA TABLETS [Suspect]
     Indication: HIV INFECTION
     Route: 048
     Dates: start: 20101015
  2. RALTEGRAVIR [Concomitant]
     Indication: HIV INFECTION
     Dates: start: 20101015, end: 20101210
  3. LAMIVUDINE [Concomitant]
     Indication: HIV INFECTION
     Dosage: ONGOING
     Dates: start: 20101210

REACTIONS (1)
  - Malaria [Recovered/Resolved]
